FAERS Safety Report 14401844 (Version 5)
Quarter: 2018Q1

REPORT INFORMATION
  Report Type: Spontaneous
  Country: JP (occurrence: JP)
  Receive Date: 20180117
  Receipt Date: 20180205
  Transmission Date: 20180509
  Serious: Yes (Other)
  Sender: FDA-Public Use
  Company Number: JP-PFIZER INC-2018016518

PATIENT
  Age: 42 Year
  Sex: Female

DRUGS (4)
  1. CISPLATIN PFIZER [Suspect]
     Active Substance: CISPLATIN
     Indication: FOLLICULAR DENDRITIC CELL SARCOMA
     Dosage: UNK UNK, CYCLIC
  2. METHYLPREDNISOLONE. [Suspect]
     Active Substance: METHYLPREDNISOLONE
     Indication: FOLLICULAR DENDRITIC CELL SARCOMA
     Dosage: UNK UNK, CYCLIC
  3. ETOPOSIDE. [Suspect]
     Active Substance: ETOPOSIDE
     Indication: FOLLICULAR DENDRITIC CELL SARCOMA
     Dosage: UNK UNK, CYCLIC
  4. CYTARABINE. [Suspect]
     Active Substance: CYTARABINE
     Indication: FOLLICULAR DENDRITIC CELL SARCOMA
     Dosage: UNK UNK, CYCLIC

REACTIONS (3)
  - Nausea [Unknown]
  - Vomiting [Unknown]
  - Fatigue [Unknown]
